FAERS Safety Report 10068893 (Version 1)
Quarter: 2014Q2

REPORT INFORMATION
  Report Type: Report from Study
  Country: US (occurrence: US)
  Receive Date: 20140409
  Receipt Date: 20140409
  Transmission Date: 20141212
  Serious: Yes (Hospitalization)
  Sender: FDA-Public Use
  Company Number: US-ABBVIE-14P-163-1220516-00

PATIENT
  Age: 35 Year
  Sex: Female

DRUGS (9)
  1. HUMIRA [Suspect]
     Indication: RHEUMATOID ARTHRITIS
     Dates: start: 201303
  2. METHOTREXATE [Concomitant]
     Indication: RHEUMATOID ARTHRITIS
  3. FOLIC ACID [Concomitant]
     Indication: VITAMIN SUPPLEMENTATION
  4. CELEXA [Concomitant]
     Indication: ANXIETY
  5. SINGULAIR [Concomitant]
     Indication: ASTHMA
  6. ZETIA [Concomitant]
     Indication: BLOOD CHOLESTEROL
  7. LEVOTHYROXIN [Concomitant]
     Indication: HYPOTHYROIDISM
  8. VOLTAREN GEL [Concomitant]
     Indication: PAIN
  9. TRAMADOL [Concomitant]
     Indication: PAIN

REACTIONS (6)
  - Hypoaesthesia [Not Recovered/Not Resolved]
  - Paraesthesia [Not Recovered/Not Resolved]
  - Burning sensation [Not Recovered/Not Resolved]
  - Dizziness [Not Recovered/Not Resolved]
  - Blood pressure increased [Recovering/Resolving]
  - Incorrect product storage [Unknown]
